FAERS Safety Report 8558906-8 (Version None)
Quarter: 2012Q3

REPORT INFORMATION
  Report Type: 
  Country: None (occurrence: None)
  Receive Date: 20120801
  Receipt Date: 20120723
  Transmission Date: 20120928
  Serious: Yes (Disabling, Other)
  Sender: FDA-Public Use
  Company Number: US-009507513-1207USA009861

PATIENT

DRUGS (10)
  1. VERAPAMIL HCL [Suspect]
     Dosage: 40 MG, TID
     Route: 048
  2. SALBUTAMOL SANDOZ (ALBUTEROL) [Concomitant]
  3. LISINOPRIL [Concomitant]
     Dosage: 20 MG, UNK
  4. ZOCOR [Suspect]
     Dosage: 40 MG, UNK
  5. BRIMONIDINE TARTRATE [Concomitant]
  6. ASPIRIN [Concomitant]
  7. PANADEINE (ACETAMINOPHEN (+) CODEINE PHOSPHATE) [Concomitant]
     Dosage: 2 MG, UNK
  8. FUROSEMIDE [Concomitant]
     Dosage: 40 MG, UNK
  9. BECLOMETHASONE DIPROPIONATE [Concomitant]
  10. SALMETEROL [Concomitant]
     Dosage: 2 MG, UNK

REACTIONS (3)
  - BLOOD CREATINE PHOSPHOKINASE INCREASED [None]
  - MYOSITIS [None]
  - HYPOKINESIA [None]
